FAERS Safety Report 8244637-0 (Version None)
Quarter: 2012Q1

REPORT INFORMATION
  Report Type: 
  Country: None (occurrence: None)
  Receive Date: 20120329
  Receipt Date: 20111215
  Transmission Date: 20120608
  Serious: Yes (Other)
  Sender: FDA-Public Use
  Company Number: US-MYLANLABS-2011S1024440

PATIENT
  Age: 55 Year
  Sex: Female
  Weight: 99.79 kg

DRUGS (27)
  1. MAXZIDE [Concomitant]
     Indication: BLOOD PRESSURE
     Dosage: 75MG/50MG
  2. LUNESTA [Concomitant]
     Indication: INSOMNIA
  3. MELATONIN [Concomitant]
  4. OXYGEN [Concomitant]
  5. FENTANYL-100 [Suspect]
     Indication: ABDOMINAL PAIN
     Dosage: CHANGED Q72H
     Route: 062
     Dates: start: 20090101, end: 20111113
  6. FENTANYL-100 [Suspect]
     Dosage: CHANGED Q72H
     Route: 062
     Dates: start: 20111119
  7. LOPRESSOR [Concomitant]
     Indication: BLOOD PRESSURE
  8. LASIX [Concomitant]
  9. PHENERGAN HCL [Concomitant]
     Indication: INSOMNIA
  10. FENTANYL-100 [Suspect]
     Indication: COLITIS ISCHAEMIC
     Dosage: CHANGED Q72H
     Route: 062
     Dates: start: 20090101, end: 20111113
  11. FENTANYL-100 [Suspect]
     Indication: PAIN
     Dosage: CHANGED Q72H
     Route: 062
     Dates: start: 20090101, end: 20111113
  12. FENTANYL-100 [Suspect]
     Indication: ANKYLOSING SPONDYLITIS
     Dosage: CHANGED Q72H
     Route: 062
     Dates: start: 20090101, end: 20111113
  13. NYSTATIN [Concomitant]
  14. FOLIC ACID [Concomitant]
  15. FENTANYL-100 [Suspect]
     Dosage: CHANGED Q72H
     Route: 062
     Dates: start: 20111119
  16. FENTANYL-100 [Suspect]
     Dosage: CHANGED Q72H
     Route: 062
     Dates: start: 20111119
  17. KLONOPIN [Concomitant]
  18. CYMBALTA [Concomitant]
  19. WELLBUTRIN [Concomitant]
  20. PROBIOTICS [Concomitant]
  21. PROMETRIUM [Concomitant]
     Indication: HORMONE REPLACEMENT THERAPY
  22. FENTANYL-100 [Suspect]
     Indication: OSTEOARTHRITIS
     Dosage: CHANGED Q72H
     Route: 062
     Dates: start: 20090101, end: 20111113
  23. FENTANYL-100 [Suspect]
     Dosage: CHANGED Q72H
     Route: 062
     Dates: start: 20111119
  24. FENTANYL-100 [Suspect]
     Dosage: CHANGED Q72H
     Route: 062
     Dates: start: 20111119
  25. CRESTOR [Concomitant]
     Indication: BLOOD CHOLESTEROL
  26. IRON [Concomitant]
  27. LEVOTHYROXINE SODIUM [Concomitant]

REACTIONS (7)
  - INSOMNIA [None]
  - FATIGUE [None]
  - DRUG WITHDRAWAL SYNDROME [None]
  - ASTHENIA [None]
  - DRUG EFFECT DECREASED [None]
  - DRUG DEPENDENCE [None]
  - TACHYCARDIA [None]
